FAERS Safety Report 9266058 (Version 2)
Quarter: 2013Q2

REPORT INFORMATION
  Report Type: Spontaneous
  Country: GB (occurrence: GB)
  Receive Date: 20130501
  Receipt Date: 20130501
  Transmission Date: 20140414
  Serious: Yes (Hospitalization)
  Sender: FDA-Public Use
  Company Number: GB-BAXTER-2013BAX013995

PATIENT
  Age: 77 Year
  Sex: Male

DRUGS (5)
  1. SODIUM CHLORIDE 0.9% W/V INTRAVENOUS INFUSION BP, POLYOLEFIN/POLYAMIDE [Suspect]
     Indication: BLOOD IRON INCREASED
     Route: 058
     Dates: start: 20130402, end: 20130409
  2. SODIUM CHLORIDE 0.9% W/V INTRAVENOUS INFUSION BP, POLYOLEFIN/POLYAMIDE [Suspect]
     Dates: start: 20130415
  3. DESFERRIOXAMINE [Suspect]
     Indication: BLOOD IRON INCREASED
     Route: 058
     Dates: start: 20130402, end: 20130409
  4. DESFERRIOXAMINE [Suspect]
     Dates: start: 20130415
  5. MOVICOL [Suspect]
     Indication: CONSTIPATION
     Route: 048
     Dates: start: 20130407, end: 20130407

REACTIONS (4)
  - Diarrhoea [Recovered/Resolved]
  - Nausea [Recovered/Resolved]
  - Constipation [Unknown]
  - Pollakiuria [Recovered/Resolved]
